FAERS Safety Report 21958907 (Version 1)
Quarter: 2023Q1

REPORT INFORMATION
  Report Type: Spontaneous
  Country: US (occurrence: US)
  Receive Date: 20230206
  Receipt Date: 20230206
  Transmission Date: 20230417
  Serious: No
  Sender: FDA-Public Use
  Company Number: US-AERIE-2022-003001

PATIENT

DRUGS (1)
  1. RHOPRESSA [Suspect]
     Active Substance: NETARSUDIL MESYLATE
     Indication: Glaucoma
     Dosage: 1 GTT, OU, QHS
     Route: 047
     Dates: start: 202101

REACTIONS (1)
  - Conjunctival hyperaemia [Not Recovered/Not Resolved]

NARRATIVE: CASE EVENT DATE: 20210101
